FAERS Safety Report 6607168-7 (Version None)
Quarter: 2010Q1

REPORT INFORMATION
  Report Type: 
  Country: None (occurrence: None)
  Receive Date: 20100212
  Receipt Date: 20091104
  Transmission Date: 20100710
  Serious: No
  Sender: FDA-Public Use
  Company Number: 1000009892

PATIENT
  Age: 53 Year
  Sex: Female

DRUGS (10)
  1. SAVELLA [Suspect]
     Indication: FIBROMYALGIA
     Dosage: SEE IMAGE
     Route: 048
     Dates: start: 20091001, end: 20091001
  2. SAVELLA [Suspect]
     Indication: FIBROMYALGIA
     Dosage: SEE IMAGE
     Route: 048
     Dates: start: 20091001, end: 20091001
  3. SAVELLA [Suspect]
     Indication: FIBROMYALGIA
     Dosage: SEE IMAGE
     Route: 048
     Dates: start: 20091001, end: 20091001
  4. SAVELLA [Suspect]
     Indication: FIBROMYALGIA
     Dosage: SEE IMAGE
     Route: 048
     Dates: start: 20091001
  5. MAXZIDE [Concomitant]
  6. SECTRAL [Concomitant]
  7. PRILOSEC [Concomitant]
  8. SYNTHROID [Concomitant]
  9. AZULFIDINE [Concomitant]
  10. TYLENOL-500 [Concomitant]

REACTIONS (1)
  - PALPITATIONS [None]
